FAERS Safety Report 16059727 (Version 8)
Quarter: 2019Q4

REPORT INFORMATION
  Report Type: Spontaneous
  Country: US (occurrence: US)
  Receive Date: 20190311
  Receipt Date: 20191021
  Transmission Date: 20200122
  Serious: No
  Sender: FDA-Public Use
  Company Number: US-ACTELION-A-NJ2019-186527

PATIENT
  Age: 63 Year
  Sex: Female
  Weight: 90.7 kg

DRUGS (3)
  1. SYNTHROID [Concomitant]
     Active Substance: LEVOTHYROXINE SODIUM
     Dosage: 75 MG, QD
  2. OPSUMIT [Suspect]
     Active Substance: MACITENTAN
     Indication: PULMONARY HYPERTENSION
     Dosage: 10 MG, QD
     Route: 048
     Dates: start: 201901
  3. ADCIRCA [Suspect]
     Active Substance: TADALAFIL
     Indication: PRODUCT USED FOR UNKNOWN INDICATION
     Route: 065

REACTIONS (13)
  - Headache [Recovering/Resolving]
  - Upper-airway cough syndrome [Unknown]
  - Oedema peripheral [Recovering/Resolving]
  - Dyspnoea [Unknown]
  - Therapy non-responder [Unknown]
  - Dyspnoea exertional [Unknown]
  - Nasopharyngitis [Unknown]
  - Palpitations [Unknown]
  - Dizziness [Unknown]
  - Paranasal sinus discomfort [Unknown]
  - Anxiety [Unknown]
  - Accidental overdose [Unknown]
  - Gait disturbance [Unknown]

NARRATIVE: CASE EVENT DATE: 201902
